FAERS Safety Report 15398088 (Version 1)
Quarter: 2018Q3

REPORT INFORMATION
  Report Type: Spontaneous
  Country: US (occurrence: US)
  Receive Date: 20180918
  Receipt Date: 20180918
  Transmission Date: 20181010
  Serious: Yes (Other)
  Sender: FDA-Public Use
  Company Number: US-AMGEN-USASP2018127719

PATIENT
  Age: 65 Year
  Sex: Female

DRUGS (16)
  1. ISRADIPINE. [Concomitant]
     Active Substance: ISRADIPINE
     Dosage: 1.5 MG, 2 CAPSULES 2 TIMES A DAY
  2. TRAZODONE [Concomitant]
     Active Substance: TRAZODONE HYDROCHLORIDE
     Dosage: UNK, AT BEDTIME
  3. ENBREL [Suspect]
     Active Substance: ETANERCEPT
     Indication: PSORIATIC ARTHROPATHY
     Dosage: 50 MG, QWK
     Route: 065
     Dates: start: 2000
  4. ENBREL [Suspect]
     Active Substance: ETANERCEPT
     Dosage: 50 MG, QWK
     Route: 065
  5. VITAMIN E [Concomitant]
     Active Substance: .ALPHA.-TOCOPHEROL
     Dosage: UNK UNK, QD
  6. ETODOLAC. [Concomitant]
     Active Substance: ETODOLAC
     Dosage: UNK UNK, BID
  7. RANITIDINE. [Concomitant]
     Active Substance: RANITIDINE
  8. METHOTREXATE. [Concomitant]
     Active Substance: METHOTREXATE
     Dosage: 2.5MG 6 TABLETS ONCE A WEEK
  9. METAXALONE. [Concomitant]
     Active Substance: METAXALONE
     Dosage: UNK UNK, BID
  10. ENBREL [Suspect]
     Active Substance: ETANERCEPT
     Dosage: 50 MG, QWK
     Route: 065
  11. CALCIUM [Concomitant]
     Active Substance: CALCIUM
     Dosage: UNK
  12. REQUIP [Concomitant]
     Active Substance: ROPINIROLE HYDROCHLORIDE
     Dosage: UNK, ONE TABLET AT BEDTIME
  13. PREDNISONE. [Concomitant]
     Active Substance: PREDNISONE
     Dosage: UNK, 1MG PLUS HALF OF A 5MG IN THE MORNING AND 1MG AT DINNER
  14. TRAMADOL. [Concomitant]
     Active Substance: TRAMADOL
     Dosage: 50 MG, BID
  15. ADVIL [Concomitant]
     Active Substance: IBUPROFEN
     Indication: PAIN
     Dosage: UNK
  16. FOLIC ACID. [Concomitant]
     Active Substance: FOLIC ACID
     Dosage: 2 TABLETS A DAY

REACTIONS (3)
  - Neoplasm malignant [Recovering/Resolving]
  - Dermatitis contact [Not Recovered/Not Resolved]
  - Fungal infection [Not Recovered/Not Resolved]

NARRATIVE: CASE EVENT DATE: 201809
